FAERS Safety Report 16361759 (Version 1)
Quarter: 2019Q2

REPORT INFORMATION
  Report Type: Other
  Country: CA (occurrence: CA)
  Receive Date: 20190528
  Receipt Date: 20190528
  Transmission Date: 20190711
  Serious: Yes (Other)
  Sender: FDA-Public Use
  Company Number: CA-COLGATE PALMOLIVE COMPANY-20190501458

PATIENT

DRUGS (23)
  1. ASCORBIC ACID (VITAMIN C) [Concomitant]
     Active Substance: ASCORBIC ACID
  2. REACTINE (CETIRIZINE HYDROCHLORIDE) [Concomitant]
     Active Substance: CETIRIZINE HYDROCHLORIDE
  3. ENBREL [Suspect]
     Active Substance: ETANERCEPT
     Indication: RHEUMATOID ARTHRITIS
  4. METHOTREXATE. [Suspect]
     Active Substance: METHOTREXATE
  5. PANTOPRAZOLE [Concomitant]
     Active Substance: PANTOPRAZOLE
  6. ACTEMRA [Suspect]
     Active Substance: TOCILIZUMAB
  7. SIMPONI [Suspect]
     Active Substance: GOLIMUMAB
     Route: 058
  8. OXYCODONE TEREPHTHALATE [Suspect]
     Active Substance: OXYCODONE TEREPHTHALATE
  9. ERGOCALCIFEROL. [Concomitant]
     Active Substance: ERGOCALCIFEROL
  10. ZOPICLONE [Concomitant]
     Active Substance: ZOPICLONE
  11. CIMZIA [Suspect]
     Active Substance: CERTOLIZUMAB PEGOL
     Indication: RHEUMATOID ARTHRITIS
     Dosage: 400 MG
     Route: 058
  12. OXYCODONE [Suspect]
     Active Substance: OXYCODONE
  13. TYLENOL [Concomitant]
     Active Substance: ACETAMINOPHEN
  14. CHLORHEXIDINE UNSPECIFIED [Suspect]
     Active Substance: CHLORHEXIDINE
  15. ACETAMINOPHEN. [Suspect]
     Active Substance: ACETAMINOPHEN
  16. ARAVA [Concomitant]
     Active Substance: LEFLUNOMIDE
  17. DESOGESTREL AND ETHINYL ESTRADIOL [Concomitant]
     Active Substance: DESOGESTREL\ETHINYL ESTRADIOL
  18. HYDROXYCHLOROQUINE [Concomitant]
     Active Substance: HYDROXYCHLOROQUINE
  19. IBUPROFEN. [Concomitant]
     Active Substance: IBUPROFEN
  20. LEFLUNOMIDE. [Suspect]
     Active Substance: LEFLUNOMIDE
  21. PREDNISONE. [Concomitant]
     Active Substance: PREDNISONE
  22. ORENCIA [Suspect]
     Active Substance: ABATACEPT
  23. VENTOLIN [Concomitant]
     Active Substance: ALBUTEROL SULFATE

REACTIONS (20)
  - Lower respiratory tract infection [Unknown]
  - Abdominal pain upper [Unknown]
  - Diarrhoea [Unknown]
  - Vomiting [Unknown]
  - Body temperature increased [Unknown]
  - Sinusitis [Unknown]
  - Rash [Unknown]
  - Peripheral swelling [Unknown]
  - Night sweats [Unknown]
  - Pruritus generalised [Unknown]
  - Muscle spasticity [Unknown]
  - Ear pain [Unknown]
  - Asthenia [Unknown]
  - Urticaria [Unknown]
  - Insomnia [Unknown]
  - Respiratory disorder [Unknown]
  - Headache [Unknown]
  - Joint swelling [Unknown]
  - Pain [Unknown]
  - Back pain [Unknown]
